FAERS Safety Report 24293781 (Version 1)
Quarter: 2024Q3

REPORT INFORMATION
  Report Type: Spontaneous
  Country: US (occurrence: None)
  Receive Date: 20240906
  Receipt Date: 20240906
  Transmission Date: 20241016
  Serious: No
  Sender: DOMPE FARMACEUTICI
  Company Number: US-FARMAPROD-202402-0641

PATIENT
  Age: 61 Year
  Sex: Male

DRUGS (3)
  1. OXERVATE [Suspect]
     Active Substance: CENEGERMIN-BKBJ
     Indication: Neurotrophic keratopathy
     Route: 047
     Dates: start: 20240220
  2. OXERVATE [Suspect]
     Active Substance: CENEGERMIN-BKBJ
  3. ZIRGAN [Concomitant]
     Active Substance: GANCICLOVIR

REACTIONS (2)
  - Eye pain [Recovering/Resolving]
  - Photophobia [Not Recovered/Not Resolved]

NARRATIVE: CASE EVENT DATE: 20240226
